FAERS Safety Report 4434873-3 (Version None)
Quarter: 2004Q3

REPORT INFORMATION
  Report Type: 
  Country: None (occurrence: None)
  Receive Date: 20040726
  Receipt Date: 20040517
  Transmission Date: 20050211
  Serious: No
  Sender: FDA-Public Use
  Company Number: USA040567780

PATIENT
  Age: 81 Year
  Sex: Female

DRUGS (13)
  1. FORTEO [Suspect]
     Dosage: 20 UG DAY
     Dates: start: 20040513
  2. PREDNISONE [Concomitant]
  3. NIFEREX (POLYSACCHARIDE-IRON COMPLEX) [Concomitant]
  4. CELEBREX [Concomitant]
  5. ULTRAM [Concomitant]
  6. SODIUM FLUORIDE [Concomitant]
  7. LASIX [Concomitant]
  8. POTASSIUM [Concomitant]
  9. CITRACAL (CALCIUM CITRATE) [Concomitant]
  10. MULTIVITAMIN [Concomitant]
  11. VITAMIN B-12 [Concomitant]
  12. VITAMIN D [Concomitant]
  13. VITAMIN C [Concomitant]

REACTIONS (4)
  - COUGH [None]
  - EYE IRRITATION [None]
  - SNEEZING [None]
  - VISION BLURRED [None]
